FAERS Safety Report 18279847 (Version 1)
Quarter: 2020Q3

REPORT INFORMATION
  Report Type: Report from Study
  Country: IT (occurrence: IT)
  Receive Date: 20200918
  Receipt Date: 20200918
  Transmission Date: 20201103
  Serious: Yes (Other)
  Sender: FDA-Public Use
  Company Number: IT-AUROBINDO-AUR-APL-2020-048035

PATIENT
  Age: 48 Year
  Sex: Female

DRUGS (3)
  1. REOPRO [Suspect]
     Active Substance: ABCIXIMAB
     Indication: STENT PLACEMENT
     Dosage: 8 MILLIGRAM
     Route: 042
  2. ACETYLSALICYLIC ACID [Suspect]
     Active Substance: ASPIRIN
     Indication: PRODUCT USED FOR UNKNOWN INDICATION
     Dosage: 100 MILLIGRAM
     Route: 065
  3. CLOPIDOGREL [Suspect]
     Active Substance: CLOPIDOGREL BISULFATE
     Indication: ANTIPLATELET THERAPY
     Dosage: 75 MILLIGRAM
     Route: 065

REACTIONS (1)
  - Haemorrhage [Unknown]
